FAERS Safety Report 18004886 (Version 1)
Quarter: 2020Q3

REPORT INFORMATION
  Report Type: Spontaneous
  Country: US (occurrence: US)
  Receive Date: 20200709
  Receipt Date: 20200709
  Transmission Date: 20201103
  Serious: Yes (Hospitalization)
  Sender: FDA-Public Use
  Company Number: None

PATIENT
  Age: 83 Year
  Sex: Male

DRUGS (20)
  1. DEFERASIROX 500MG TAB FOR SUSP [Suspect]
     Active Substance: DEFERASIROX
     Indication: IRON METABOLISM DISORDER
     Dosage: ?          OTHER DOSE:3 TABS?DISPERSED;OTHER FREQUENCY:QAM;OTHER ROUTE:PO VIA DRINK?
     Dates: start: 20140729
  2. ASPIRIN 81MG [Suspect]
     Active Substance: ASPIRIN
  3. LUMIGAN [Suspect]
     Active Substance: BIMATOPROST
  4. MAGNESIUM [Suspect]
     Active Substance: MAGNESIUM
  5. MULTIPLE VIT [Concomitant]
  6. EXJADE [Suspect]
     Active Substance: DEFERASIROX
  7. LATANOPROST. [Suspect]
     Active Substance: LATANOPROST
  8. TIMOLOL MAL [Concomitant]
  9. CLOTRIM/BETA [Concomitant]
  10. FLUTICASONE. [Suspect]
     Active Substance: FLUTICASONE
  11. FUROSEMIDE. [Suspect]
     Active Substance: FUROSEMIDE
  12. POT CHLORIDE [Concomitant]
     Active Substance: POTASSIUM CHLORIDE
  13. DICLOFENAC [Suspect]
     Active Substance: DICLOFENAC
  14. FISH OIL [Suspect]
     Active Substance: FISH OIL
  15. OMEPRAZOLE. [Concomitant]
     Active Substance: OMEPRAZOLE
  16. SILDENAFIL. [Concomitant]
     Active Substance: SILDENAFIL
  17. RANITIDE [Concomitant]
  18. TRAMADOL HCL [Concomitant]
     Active Substance: TRAMADOL HYDROCHLORIDE
  19. VIDAZA [Concomitant]
     Active Substance: AZACITIDINE
  20. VITAMIN D [Suspect]
     Active Substance: VITAMIN D NOS

REACTIONS (3)
  - Nausea [None]
  - Vomiting [None]
  - Obstruction gastric [None]

NARRATIVE: CASE EVENT DATE: 20200708
